FAERS Safety Report 7672719-0 (Version None)
Quarter: 2011Q3

REPORT INFORMATION
  Report Type: 
  Country: None (occurrence: None)
  Receive Date: 20110809
  Receipt Date: 20110804
  Transmission Date: 20111222
  Serious: Yes (Life-Threatening, Hospitalization)
  Sender: FDA-Public Use
  Company Number: ES-TEVA-295093ISR

PATIENT
  Sex: Female
  Weight: 55 kg

DRUGS (11)
  1. LENALIDOMIDE [Suspect]
     Dosage: 10 MILLIGRAM;
     Route: 048
     Dates: end: 20100301
  2. LENALIDOMIDE [Suspect]
     Dosage: 10 MILLIGRAM;
     Route: 048
     Dates: start: 20090907
  3. DEXAMETHASONE [Suspect]
     Route: 048
     Dates: start: 20090907
  4. DEXAMETHASONE [Suspect]
     Route: 048
     Dates: end: 20100301
  5. DEXAMETHASONE [Suspect]
     Route: 048
     Dates: start: 20100517
  6. FUROSEMIDE [Concomitant]
     Indication: OEDEMA
  7. LENALIDOMIDE [Suspect]
     Dosage: 10 MILLIGRAM;
     Route: 048
     Dates: start: 20100517
  8. LENALIDOMIDE [Suspect]
     Indication: MULTIPLE MYELOMA
     Dosage: 10 MILLIGRAM;
     Route: 048
     Dates: start: 20100201, end: 20100221
  9. SALICYLIC ACID [Concomitant]
     Indication: THROMBOSIS PROPHYLAXIS
     Dosage: 100 MILLIGRAM;
     Route: 048
     Dates: start: 20090907, end: 20100413
  10. SALICYLIC ACID [Concomitant]
     Dosage: 100 MILLIGRAM;
     Route: 048
     Dates: start: 20100423
  11. DEXAMETHASONE [Suspect]
     Indication: MULTIPLE MYELOMA
     Route: 048
     Dates: start: 20100201, end: 20100228

REACTIONS (6)
  - PULMONARY HYPERTENSION [None]
  - HYPOKALAEMIA [None]
  - BRONCHIECTASIS [None]
  - FATIGUE [None]
  - INTERSTITIAL LUNG DISEASE [None]
  - WHIPPLE'S DISEASE [None]
